FAERS Safety Report 10447313 (Version 1)
Quarter: 2014Q3

REPORT INFORMATION
  Report Type: Spontaneous
  Country: US (occurrence: None)
  Receive Date: 20140910
  Receipt Date: 20140910
  Transmission Date: 20150326
  Serious: No
  Sender: FDA-Public Use
  Company Number: None

PATIENT
  Sex: Female

DRUGS (1)
  1. ASTAGRAF XL [Suspect]
     Active Substance: TACROLIMUS
     Dosage: CAPSULE, ORAL, STRENGTH: 1 MG, BOTTLE, SIZE: 30 CAPSULES?
     Route: 048

REACTIONS (3)
  - Incorrect dose administered [None]
  - Product label confusion [None]
  - Immunosuppressant drug level decreased [None]
